FAERS Safety Report 19196692 (Version 1)
Quarter: 2021Q2

REPORT INFORMATION
  Report Type: Spontaneous
  Country: US (occurrence: US)
  Receive Date: 20210430
  Receipt Date: 20210430
  Transmission Date: 20210717
  Serious: No
  Sender: FDA-Public Use
  Company Number: US-BAUSCH-BL-2021-010983

PATIENT
  Sex: Female

DRUGS (1)
  1. LIBRAX [Suspect]
     Active Substance: CHLORDIAZEPOXIDE HYDROCHLORIDE\CLIDINIUM BROMIDE
     Indication: PRODUCT USED FOR UNKNOWN INDICATION
     Dosage: STRENGTH: 5/2.5MG
     Route: 065
     Dates: end: 2016

REACTIONS (2)
  - Ill-defined disorder [Not Recovered/Not Resolved]
  - Therapy interrupted [Unknown]
